FAERS Safety Report 16635199 (Version 2)
Quarter: 2019Q3

REPORT INFORMATION
  Report Type: Report from Study
  Country: CO (occurrence: CO)
  Receive Date: 20190726
  Receipt Date: 20190822
  Transmission Date: 20191004
  Serious: Yes (Other)
  Sender: FDA-Public Use
  Company Number: PHHY2019CO170187

PATIENT
  Sex: Male
  Weight: 78 kg

DRUGS (1)
  1. GLIVEC [Suspect]
     Active Substance: IMATINIB MESYLATE
     Indication: GASTROINTESTINAL STROMAL TUMOUR
     Dosage: 400 MG, QD
     Route: 048
     Dates: start: 20190307

REACTIONS (5)
  - Penile pain [Unknown]
  - Abdominal pain upper [Unknown]
  - Penile burning sensation [Unknown]
  - Urinary tract obstruction [Unknown]
  - Arthritis infective [Recovering/Resolving]
